FAERS Safety Report 10416596 (Version 2)
Quarter: 2014Q4

REPORT INFORMATION
  Report Type: Report from Study
  Country: TW (occurrence: TW)
  Receive Date: 20140828
  Receipt Date: 20141022
  Transmission Date: 20150528
  Serious: Yes (Death, Other)
  Sender: FDA-Public Use
  Company Number: PHHY2014TW107600

PATIENT
  Age: 52 Year
  Sex: Female
  Weight: 58 kg

DRUGS (2)
  1. PARAMOL [Concomitant]
     Indication: HEADACHE
     Dosage: 2000 MG, UNK
     Route: 065
     Dates: start: 20140724
  2. AMN107 [Suspect]
     Active Substance: NILOTINIB
     Indication: CHRONIC MYELOID LEUKAEMIA
     Dosage: 300 MG, BID
     Route: 048
     Dates: start: 20140718, end: 20140819

REACTIONS (6)
  - Cardiac arrest [Unknown]
  - Vomiting [Unknown]
  - Cerebral haemorrhage [Fatal]
  - Leukocytosis [Unknown]
  - Blast crisis in myelogenous leukaemia [Unknown]
  - Disseminated intravascular coagulation [Fatal]

NARRATIVE: CASE EVENT DATE: 20140822
